FAERS Safety Report 11990348 (Version 1)
Quarter: 2016Q1

REPORT INFORMATION
  Report Type: Spontaneous
  Country: US (occurrence: US)
  Receive Date: 20160202
  Receipt Date: 20160202
  Transmission Date: 20160526
  Serious: No
  Sender: FDA-Public Use
  Company Number: US-GUERBET LLC-1047213

PATIENT
  Age: 19 Year
  Sex: Female
  Weight: 83.9 kg

DRUGS (1)
  1. DOTAREM [Suspect]
     Active Substance: GADOTERATE MEGLUMINE
     Indication: NUCLEAR MAGNETIC RESONANCE IMAGING
     Route: 042
     Dates: start: 20151219, end: 20151219

REACTIONS (2)
  - Urticaria [Recovered/Resolved]
  - Pruritus [None]

NARRATIVE: CASE EVENT DATE: 20151219
